FAERS Safety Report 6130986-9 (Version None)
Quarter: 2009Q1

REPORT INFORMATION
  Report Type: 
  Country: None (occurrence: None)
  Receive Date: 20090325
  Receipt Date: 20090310
  Transmission Date: 20090719
  Serious: Yes (Life-Threatening, Hospitalization, Other)
  Sender: FDA-Public Use
  Company Number: US-PFIZER INC-2007017732

PATIENT
  Sex: Male
  Weight: 88.5 kg

DRUGS (5)
  1. LYRICA [Suspect]
     Indication: NEURALGIA
     Dates: start: 20060101
  2. LYRICA [Suspect]
     Indication: NEUROPATHY PERIPHERAL
  3. OXYCONTIN [Concomitant]
  4. LISINOPRIL [Concomitant]
  5. HYDROCHLOROTHIAZIDE [Concomitant]

REACTIONS (5)
  - ATRIOVENTRICULAR BLOCK [None]
  - CARDIAC ARREST [None]
  - HYPOTENSION [None]
  - PNEUMONIA [None]
  - SEPSIS [None]
